FAERS Safety Report 4378677-9 (Version None)
Quarter: 2004Q2

REPORT INFORMATION
  Report Type: 
  Country: None (occurrence: None)
  Receive Date: 20040616
  Receipt Date: 20040606
  Transmission Date: 20050107
  Serious: Yes (Hospitalization)
  Sender: FDA-Public Use
  Company Number: US-ROCHE-370163

PATIENT
  Age: 47 Year
  Sex: Female
  Weight: 34.5 kg

DRUGS (19)
  1. PEG-INTERFERON ALFA 2A (RO 25-8310) [Suspect]
     Route: 058
     Dates: start: 20040427, end: 20040601
  2. PEG-INTERFERON ALFA 2A (RO 25-8310) [Suspect]
     Route: 058
     Dates: end: 20040608
  3. RIBAVIRIN [Suspect]
     Route: 048
     Dates: start: 20040427, end: 20040601
  4. RIBAVIRIN [Suspect]
     Route: 048
     Dates: start: 20040607, end: 20040608
  5. AMBIEN [Concomitant]
     Dosage: AT NIGHT PRN AS NEEDED
     Dates: start: 20040406
  6. LEXAPRO [Concomitant]
     Dates: start: 20040406
  7. MIDRIN [Concomitant]
     Dates: start: 20040511
  8. NEXIUM [Concomitant]
     Dates: start: 20040511
  9. ELAVIL [Concomitant]
     Dates: start: 20040511
  10. AMITRIPTYLINE HCL [Concomitant]
     Dates: start: 20040511
  11. TEQUIN [Concomitant]
     Dates: start: 20040601, end: 20040606
  12. FLEXTRA [Concomitant]
     Dates: start: 20040601, end: 20040607
  13. MOBIC [Concomitant]
     Dates: start: 20040601, end: 20040607
  14. SKELAXIN [Concomitant]
  15. NULEV [Concomitant]
     Dosage: 0.125 MG EVERY 3-4 H
  16. ULTRAM [Concomitant]
     Dosage: 50 MG EVERY 4-6 H
  17. ALLEGRA [Concomitant]
  18. UNKNOWN MEDICATION NOS [Concomitant]
  19. RHINOCORT [Concomitant]
     Route: 045

REACTIONS (9)
  - ASTHENIA [None]
  - DYSPNOEA [None]
  - HEADACHE [None]
  - MONOCYTE COUNT INCREASED [None]
  - PLATELET COUNT DECREASED [None]
  - RED BLOOD CELL COUNT DECREASED [None]
  - SINUS CONGESTION [None]
  - SYNCOPE [None]
  - WHITE BLOOD CELL COUNT DECREASED [None]
